FAERS Safety Report 17891399 (Version 2)
Quarter: 2020Q3

REPORT INFORMATION
  Report Type: Spontaneous
  Country: BR (occurrence: BR)
  Receive Date: 20200612
  Receipt Date: 20200818
  Transmission Date: 20201103
  Serious: Yes (Hospitalization, Other)
  Sender: FDA-Public Use
  Company Number: BR-SA-2020SA148901

PATIENT

DRUGS (5)
  1. AAS [Concomitant]
     Active Substance: ASPIRIN
     Indication: HYPERCOAGULATION
     Dosage: 1 DF, QD (MORNING)
     Route: 048
     Dates: start: 201907, end: 201908
  2. OFOLATO [Concomitant]
     Dosage: 1 DF, QD
     Route: 048
     Dates: start: 201907, end: 201908
  3. CLEXANE [Suspect]
     Active Substance: ENOXAPARIN SODIUM
     Indication: HYPERCOAGULATION
     Dosage: 40 MG, QD (1 INJECTION IN THE MORNING)
     Route: 058
     Dates: start: 201907, end: 201908
  4. CLEXANE [Suspect]
     Active Substance: ENOXAPARIN SODIUM
     Dosage: 60 DF, QD DOSE INCREASED
     Route: 058
  5. METICORTEN [Concomitant]
     Active Substance: PREDNISONE
     Indication: HYPERCOAGULATION
     Dosage: 2 DF, QD
     Route: 048
     Dates: start: 201907, end: 201908

REACTIONS (5)
  - Abortion spontaneous [Unknown]
  - Product packaging issue [Unknown]
  - Exposure during pregnancy [Unknown]
  - Drug ineffective for unapproved indication [Unknown]
  - Product use in unapproved indication [Unknown]

NARRATIVE: CASE EVENT DATE: 2019
